FAERS Safety Report 5309218-7 (Version None)
Quarter: 2007Q2

REPORT INFORMATION
  Report Type: 
  Country: None (occurrence: None)
  Receive Date: 20070423
  Receipt Date: 20070409
  Transmission Date: 20071010
  Serious: Yes (Other)
  Sender: FDA-Public Use
  Company Number: 2007315089

PATIENT
  Age: 72 Year
  Sex: Male
  Weight: 81.6 kg

DRUGS (6)
  1. BENADRYL ALLERGY (DIPHENHYDRAMINE HYDROCHLORIDE, DIPHENHYDRAMINE) [Suspect]
     Indication: HYPERSENSITIVITY
     Dosage: 1 TABLET EVERY 4 HOURS, ORAL
     Route: 048
     Dates: start: 20070403, end: 20070405
  2. VISINE-A [Suspect]
     Indication: EYE DISORDER
     Dosage: 1 DROP IN EACH EYE AS  NEEDED, OPHTHALMIC
     Route: 047
     Dates: start: 20070409
  3. VISINE-A [Suspect]
     Indication: EYE PRURITUS
     Dosage: 1 DROP IN EACH EYE AS NEEDED, OPHTHALMIC
     Route: 047
     Dates: start: 20070409
  4. ASPIRIN [Concomitant]
  5. LISINOPRIL [Concomitant]
  6. RANITIDINE [Concomitant]

REACTIONS (2)
  - BLOOD PRESSURE INCREASED [None]
  - DIZZINESS [None]
